FAERS Safety Report 25368977 (Version 1)
Quarter: 2025Q2

REPORT INFORMATION
  Report Type: Spontaneous
  Country: JP (occurrence: JP)
  Receive Date: 20250528
  Receipt Date: 20250528
  Transmission Date: 20250717
  Serious: Yes (Other)
  Sender: MERCK SHARP & DOHME LLC
  Company Number: JP-009507513-2288456

PATIENT
  Age: 78 Year
  Sex: Female

DRUGS (2)
  1. KEYTRUDA [Suspect]
     Active Substance: PEMBROLIZUMAB
  2. ENFORTUMAB VEDOTIN [Suspect]
     Active Substance: ENFORTUMAB VEDOTIN

REACTIONS (4)
  - Neuropathy peripheral [Unknown]
  - Taste disorder [Unknown]
  - Skin disorder [Unknown]
  - Malignant neoplasm progression [Unknown]
